FAERS Safety Report 16080000 (Version 1)
Quarter: 2019Q1

REPORT INFORMATION
  Report Type: Spontaneous
  Country: DE (occurrence: DE)
  Receive Date: 20190315
  Receipt Date: 20190315
  Transmission Date: 20190418
  Serious: Yes (Hospitalization, Other)
  Sender: FDA-Public Use
  Company Number: DE-PFIZER INC-2019116237

PATIENT
  Age: 50 Year
  Sex: Male
  Weight: 83 kg

DRUGS (5)
  1. INFLIXIMAB PFIZER [Suspect]
     Active Substance: INFLIXIMAB
     Dosage: 420 MG, UNK
     Route: 065
     Dates: start: 20190206
  2. INFLIXIMAB PFIZER [Suspect]
     Active Substance: INFLIXIMAB
     Dosage: 420 MG, UNK
     Route: 065
     Dates: start: 20190123
  3. L-THYROXIN [Concomitant]
     Active Substance: LEVOTHYROXINE SODIUM
     Dosage: UNK
     Dates: start: 20180115
  4. RAMIPRIL. [Concomitant]
     Active Substance: RAMIPRIL
     Dosage: UNK
     Dates: start: 20180115
  5. DEKRISTOL [Concomitant]
     Active Substance: CHOLECALCIFEROL
     Dosage: UNK
     Dates: start: 20181001

REACTIONS (3)
  - Abdominal incarcerated hernia [Not Recovered/Not Resolved]
  - Wound infection [Unknown]
  - Abdominal pain [Not Recovered/Not Resolved]

NARRATIVE: CASE EVENT DATE: 20190218
